FAERS Safety Report 4495235-6 (Version None)
Quarter: 2004Q4

REPORT INFORMATION
  Report Type: 
  Country: None (occurrence: None)
  Receive Date: 20041108
  Receipt Date: 20040722
  Transmission Date: 20050328
  Serious: No
  Sender: FDA-Public Use
  Company Number: US-GLAXOSMITHKLINE-A0519398A

PATIENT
  Sex: Male

DRUGS (6)
  1. AVANDAMET [Suspect]
     Route: 048
     Dates: start: 20040720
  2. NEXIUM [Concomitant]
  3. ZOCOR [Concomitant]
  4. COZAAR [Concomitant]
  5. TOPROL-XL [Concomitant]
  6. HYDROCHLOROTHIAZIDE [Concomitant]

REACTIONS (3)
  - EYE SWELLING [None]
  - PRURITUS [None]
  - STOMACH DISCOMFORT [None]
